FAERS Safety Report 22621640 (Version 1)
Quarter: 2023Q2

REPORT INFORMATION
  Report Type: Spontaneous
  Country: US (occurrence: US)
  Receive Date: 20230620
  Receipt Date: 20230620
  Transmission Date: 20230721
  Serious: No
  Sender: FDA-Public Use
  Company Number: US-PFIZER INC-US-GBT-015717

PATIENT
  Age: 6 Year
  Sex: Female

DRUGS (2)
  1. OXBRYTA [Suspect]
     Active Substance: VOXELOTOR
     Indication: Sickle cell disease
     Dosage: 900 MG, (3 TABLETS FOR ORAL SUSPENSION, ONCE DAILY)
     Route: 048
     Dates: start: 20220811
  2. VITAMINS NOS [Suspect]
     Active Substance: VITAMINS
     Dosage: UNK

REACTIONS (2)
  - Vomiting [Recovered/Resolved]
  - Product dose omission issue [Unknown]

NARRATIVE: CASE EVENT DATE: 20220801
